FAERS Safety Report 8198001-3 (Version None)
Quarter: 2012Q1

REPORT INFORMATION
  Report Type: 
  Country: None (occurrence: None)
  Receive Date: 20120309
  Receipt Date: 20120106
  Transmission Date: 20120608
  Serious: No
  Sender: FDA-Public Use
  Company Number: US-AMGEN-USASP2012000960

PATIENT
  Age: 68 Year
  Sex: Female

DRUGS (2)
  1. XGEVA [Suspect]
     Indication: METASTASES TO BONE
     Dosage: UNK UNK, QMO
     Dates: start: 20110701
  2. FASLODEX [Concomitant]

REACTIONS (5)
  - POOR QUALITY SLEEP [None]
  - ARTHRALGIA [None]
  - FACIAL PAIN [None]
  - PAIN IN EXTREMITY [None]
  - HEADACHE [None]
